FAERS Safety Report 13852845 (Version 1)
Quarter: 2017Q3

REPORT INFORMATION
  Report Type: Spontaneous
  Country: US (occurrence: US)
  Receive Date: 20170809
  Receipt Date: 20170809
  Transmission Date: 20171127
  Serious: No
  Sender: FDA-Public Use
  Company Number: US-ROCHE-759773

PATIENT
  Age: 82 Year
  Sex: Female
  Weight: 61.7 kg

DRUGS (5)
  1. NIFEDIPINE. [Concomitant]
     Active Substance: NIFEDIPINE
     Route: 065
  2. SEPTRA [Concomitant]
     Active Substance: SULFAMETHOXAZOLE\TRIMETHOPRIM
     Route: 065
  3. IMDUR [Concomitant]
     Active Substance: ISOSORBIDE MONONITRATE
     Route: 065
  4. BONIVA [Suspect]
     Active Substance: IBANDRONATE SODIUM
     Indication: OSTEOPOROSIS
     Route: 048
  5. ACEBUTOLOL [Concomitant]
     Active Substance: ACEBUTOLOL
     Route: 065

REACTIONS (2)
  - Ear pain [Recovered/Resolved]
  - Chest discomfort [Recovering/Resolving]

NARRATIVE: CASE EVENT DATE: 20110206
